FAERS Safety Report 19391322 (Version 1)
Quarter: 2021Q2

REPORT INFORMATION
  Report Type: Report from Study
  Country: None (occurrence: CA)
  Receive Date: 20210609
  Receipt Date: 20210609
  Transmission Date: 20210717
  Serious: Yes (Other)
  Sender: FDA-Public Use
  Company Number: CA-ABBVIE-21K-028-3940059-00

PATIENT
  Sex: Female

DRUGS (1)
  1. HUMIRA [Suspect]
     Active Substance: ADALIMUMAB
     Indication: COLITIS ULCERATIVE
     Route: 058
     Dates: start: 20210106

REACTIONS (8)
  - Pouchitis [Unknown]
  - Arthritis enteropathic [Unknown]
  - Weight decreased [Recovered/Resolved]
  - Defaecation urgency [Unknown]
  - Frequent bowel movements [Not Recovered/Not Resolved]
  - Dehydration [Unknown]
  - Pyoderma gangrenosum [Unknown]
  - Surgery [Unknown]

NARRATIVE: CASE EVENT DATE: 2021
